APPROVED DRUG PRODUCT: TOPIRAMATE
Active Ingredient: TOPIRAMATE
Strength: 100MG
Dosage Form/Route: CAPSULE, EXTENDED RELEASE;ORAL
Application: A207382 | Product #003 | TE Code: AB1
Applicant: ZYDUS WORLDWIDE DMCC
Approved: Nov 24, 2017 | RLD: No | RS: No | Type: RX